FAERS Safety Report 6106796-5 (Version None)
Quarter: 2009Q1

REPORT INFORMATION
  Report Type: 
  Country: None (occurrence: None)
  Receive Date: 20090304
  Receipt Date: 20090217
  Transmission Date: 20090719
  Serious: Yes (Life-Threatening)
  Sender: FDA-Public Use
  Company Number: 8043469

PATIENT
  Age: 86 Year
  Sex: Male

DRUGS (4)
  1. KEPPRA [Suspect]
     Dosage: 250 MG 2/D PO
     Route: 048
     Dates: start: 20080104, end: 20080109
  2. RISPERIDONE [Concomitant]
  3. OMEPRAZOLE [Concomitant]
  4. FORTECORTIN [Concomitant]

REACTIONS (1)
  - THROMBOCYTOPENIA [None]
